FAERS Safety Report 9643980 (Version 1)
Quarter: 2013Q4

REPORT INFORMATION
  Report Type: Spontaneous
  Country: MX (occurrence: None)
  Receive Date: 20131023
  Receipt Date: 20131023
  Transmission Date: 20140711
  Serious: Yes (Death, Hospitalization)
  Sender: FDA-Public Use
  Company Number: ENTC2013-0397

PATIENT
  Age: 89 Year
  Sex: Female

DRUGS (7)
  1. STALEVO (LEVODOPA, CARBIDOPA, ENTACAPONE) [Suspect]
     Dates: start: 201302
  2. EXELON (RIVASTIGMINE) [Suspect]
     Indication: DEMENTIA ALZHEIMER^S TYPE
     Route: 062
     Dates: start: 20130112
  3. PAXIL [Concomitant]
  4. SERC [Concomitant]
  5. LEVOTIROXINA [Concomitant]
  6. JANUVIA [Concomitant]
  7. APROVEL [Concomitant]

REACTIONS (2)
  - Cerebrovascular accident [None]
  - Feeling abnormal [None]
